FAERS Safety Report 8922554 (Version 1)
Quarter: 2012Q4

REPORT INFORMATION
  Report Type: Report from Study
  Country: FR (occurrence: FR)
  Receive Date: 20121123
  Receipt Date: 20121123
  Transmission Date: 20130627
  Serious: Yes (Hospitalization, Other)
  Sender: FDA-Public Use
  Company Number: FR-009507513-1111FRA00070

PATIENT
  Age: 69 Year
  Sex: Female

DRUGS (3)
  1. METFORMIN HYDROCHLORIDE\SITAGLIPTIN PHOSPHATE [Suspect]
     Indication: TYPE 2 DIABETES MELLITUS
     Dosage: 2 DF, qd
     Route: 048
     Dates: start: 20100324, end: 20111102
  2. FUROSEMIDE [Suspect]
     Indication: CARDIOMYOPATHY
     Dosage: UNK
     Route: 048
  3. COVERSYL (PERINDOPRIL ARGININE) [Concomitant]
     Indication: HYPERTENSION
     Dates: start: 20100710

REACTIONS (1)
  - Nephrolithiasis [Recovered/Resolved]
